FAERS Safety Report 9971293 (Version 2)
Quarter: 2014Q1

REPORT INFORMATION
  Report Type: Report from Study
  Country: US (occurrence: US)
  Receive Date: 20140306
  Receipt Date: 20140306
  Transmission Date: 20141002
  Serious: No
  Sender: FDA-Public Use
  Company Number: US-ABBVIE-13P-163-1141015-00

PATIENT
  Age: 77 Year
  Sex: Male

DRUGS (11)
  1. HUMIRA [Suspect]
     Indication: RHEUMATOID ARTHRITIS
     Dates: start: 20130808
  2. HUMIRA [Suspect]
     Dates: start: 20130905
  3. METFORMIN [Concomitant]
     Indication: DIABETES MELLITUS
  4. CRESTOR [Concomitant]
     Indication: BLOOD CHOLESTEROL INCREASED
  5. GLIPIZIDE [Concomitant]
     Indication: DIABETES MELLITUS
  6. FOLIC ACID [Concomitant]
     Indication: VITAMIN SUPPLEMENTATION
  7. METHOTREXATE [Concomitant]
     Indication: PRODUCT USED FOR UNKNOWN INDICATION
  8. ASPIRIN [Concomitant]
     Indication: CARDIOVASCULAR EVENT PROPHYLAXIS
     Dosage: DAILY
  9. PREDNISONE [Concomitant]
     Indication: RHEUMATOID ARTHRITIS
     Dates: end: 20130913
  10. PREDNISONE [Concomitant]
     Dates: start: 20130913
  11. ACIPHEX [Concomitant]
     Indication: GASTROOESOPHAGEAL REFLUX DISEASE

REACTIONS (9)
  - Weight decreased [Recovering/Resolving]
  - Arthralgia [Not Recovered/Not Resolved]
  - Injection site pain [Recovering/Resolving]
  - Musculoskeletal pain [Recovered/Resolved]
  - Myalgia [Recovering/Resolving]
  - Muscular weakness [Unknown]
  - Palpitations [Not Recovered/Not Resolved]
  - Injection site haemorrhage [Recovered/Resolved]
  - Injection site pain [Recovered/Resolved]
